FAERS Safety Report 21823747 (Version 4)
Quarter: 2023Q2

REPORT INFORMATION
  Report Type: Spontaneous
  Country: US (occurrence: US)
  Receive Date: 20230105
  Receipt Date: 20230605
  Transmission Date: 20230722
  Serious: Yes (Other)
  Sender: FDA-Public Use
  Company Number: US-BRISTOL-MYERS SQUIBB COMPANY-2023-001881

PATIENT
  Age: 67 Year
  Sex: Male

DRUGS (2)
  1. POMALYST [Suspect]
     Active Substance: POMALIDOMIDE
     Indication: Plasma cell myeloma in remission
     Dosage: FREQ: TAKE 1 CAPSULE BY MOUTH EVERY DAY FOR 7 DAYS ON AND 7 DAYS OFF
     Route: 048
     Dates: start: 20191119
  2. POMALYST [Suspect]
     Active Substance: POMALIDOMIDE
     Dosage: FREQ: TAKE 1 CAPSULE BY MOUTH EVERY DAY FOR 7 DAYS ON AND 7 DAYS OFF
     Route: 048
     Dates: start: 20230331

REACTIONS (9)
  - Myalgia [Unknown]
  - Bone pain [Unknown]
  - Mood swings [Unknown]
  - Fatigue [Unknown]
  - Off label use [Unknown]
  - Headache [Recovered/Resolved]
  - Hypersensitivity [Not Recovered/Not Resolved]
  - Cough [Not Recovered/Not Resolved]
  - Back pain [Recovered/Resolved]
